FAERS Safety Report 8330172-8 (Version None)
Quarter: 2012Q2

REPORT INFORMATION
  Report Type: 
  Country: None (occurrence: None)
  Receive Date: 20120502
  Receipt Date: 20120426
  Transmission Date: 20120825
  Serious: Yes (Death)
  Sender: FDA-Public Use
  Company Number: KR-PFIZER INC-2012104262

PATIENT
  Age: 72 Year
  Sex: Female

DRUGS (2)
  1. TIGECYCLINE [Suspect]
     Dosage: 50 MG, 2X/DAY
     Route: 042
  2. TIGECYCLINE [Suspect]
     Indication: PERITONITIS BACTERIAL
     Dosage: 100 MG, SINGLE, LOADING DOSE
     Route: 042

REACTIONS (1)
  - INFECTION [None]
